FAERS Safety Report 23057844 (Version 2)
Quarter: 2023Q4

REPORT INFORMATION
  Report Type: Spontaneous
  Country: US (occurrence: US)
  Receive Date: 20231012
  Receipt Date: 20231027
  Transmission Date: 20240110
  Serious: Yes (Hospitalization)
  Sender: FDA-Public Use
  Company Number: US-drreddys-SPO/USA/23/0176782

PATIENT
  Age: 63 Year
  Sex: Male

DRUGS (2)
  1. CLOZAPINE [Suspect]
     Active Substance: CLOZAPINE
     Indication: Product used for unknown indication
     Dates: end: 2015
  2. CLOZAPINE [Suspect]
     Active Substance: CLOZAPINE
     Dosage: RE-STARTED

REACTIONS (2)
  - Hospitalisation [Unknown]
  - Unevaluable event [Unknown]
